FAERS Safety Report 20840449 (Version 1)
Quarter: 2022Q2

REPORT INFORMATION
  Report Type: Spontaneous
  Country: None (occurrence: IT)
  Receive Date: 20220517
  Receipt Date: 20220517
  Transmission Date: 20220721
  Serious: Yes (Hospitalization, Other)
  Sender: FDA-Public Use
  Company Number: IT-B.Braun Medical Inc.-2128864

PATIENT
  Age: 50 Year
  Sex: Male

DRUGS (2)
  1. ACETAMINOPHEN [Suspect]
     Active Substance: ACETAMINOPHEN
  2. TECFIDERA [Concomitant]
     Active Substance: DIMETHYL FUMARATE

REACTIONS (4)
  - Suicide attempt [Not Recovered/Not Resolved]
  - Analgesic drug level increased [Not Recovered/Not Resolved]
  - Sopor [Not Recovered/Not Resolved]
  - Vomiting [Not Recovered/Not Resolved]
